FAERS Safety Report 8615655-5 (Version None)
Quarter: 2012Q3

REPORT INFORMATION
  Report Type: 
  Country: None (occurrence: None)
  Receive Date: 20120823
  Receipt Date: 20120814
  Transmission Date: 20120928
  Serious: Yes (Hospitalization, Other)
  Sender: FDA-Public Use
  Company Number: FR-ASTRAZENECA-2012SE34053

PATIENT
  Age: 12221 Day
  Sex: Male
  Weight: 83 kg

DRUGS (5)
  1. SEROQUEL [Suspect]
     Route: 048
     Dates: start: 20120123, end: 20120307
  2. BROMAZEPAM [Concomitant]
     Indication: ANXIETY
     Route: 048
     Dates: start: 20100101
  3. FENOFIBRATE [Concomitant]
     Indication: TYPE IIA HYPERLIPIDAEMIA
  4. SEROQUEL [Suspect]
     Route: 048
     Dates: start: 20120308, end: 20120510
  5. SEROQUEL [Suspect]
     Indication: SCHIZOPHRENIA
     Route: 048
     Dates: start: 20111205, end: 20120122

REACTIONS (4)
  - PSYCHIATRIC DECOMPENSATION [None]
  - HEPATIC STEATOSIS [None]
  - LIPASE INCREASED [None]
  - BLOOD TRIGLYCERIDES INCREASED [None]
